FAERS Safety Report 16049543 (Version 1)
Quarter: 2019Q1

REPORT INFORMATION
  Report Type: Spontaneous
  Country: US (occurrence: US)
  Receive Date: 20190307
  Receipt Date: 20190307
  Transmission Date: 20190418
  Serious: No
  Sender: FDA-Public Use
  Company Number: US-PFIZER INC-2019087398

PATIENT
  Sex: Male

DRUGS (2)
  1. CHANTIX [Suspect]
     Active Substance: VARENICLINE TARTRATE
     Dosage: 1 MG, UNK [BUT IT IS FOR THE CONTINUOUS PACK OF]
  2. CHANTIX [Suspect]
     Active Substance: VARENICLINE TARTRATE
     Dosage: UNK, UNK [STARTED TAKING 1 IN MORNING AND IN THE PM, THEN 1 PILL A DAY]

REACTIONS (2)
  - Product prescribing error [Unknown]
  - Drug ineffective [Unknown]
